FAERS Safety Report 20679193 (Version 1)
Quarter: 2022Q2

REPORT INFORMATION
  Report Type: Spontaneous
  Country: US (occurrence: US)
  Receive Date: 20220406
  Receipt Date: 20220406
  Transmission Date: 20220721
  Serious: Yes (Other)
  Sender: FDA-Public Use
  Company Number: US-BRISTOL-MYERS SQUIBB COMPANY-2022-015694

PATIENT
  Age: 42 Year
  Sex: Female
  Weight: 63.3 kg

DRUGS (4)
  1. POMALIDOMIDE [Suspect]
     Active Substance: POMALIDOMIDE
     Indication: Product used for unknown indication
     Dosage: DAY 1-21 Q 28DAYS
     Route: 048
     Dates: start: 20201204, end: 20210723
  2. ELOTUZUMAB [Suspect]
     Active Substance: ELOTUZUMAB
     Indication: Product used for unknown indication
     Dosage: DAY 1-21 Q 28DAYS
     Route: 041
     Dates: start: 20201204, end: 20210125
  3. ELOTUZUMAB [Suspect]
     Active Substance: ELOTUZUMAB
     Dosage: Q 28 DAYS
     Route: 041
     Dates: start: 20200201, end: 20200723
  4. DEXAMETHASONE [Concomitant]
     Active Substance: DEXAMETHASONE
     Indication: Product used for unknown indication
     Route: 048
     Dates: start: 20201204, end: 20210723

REACTIONS (1)
  - Malignant neoplasm progression [Unknown]
